FAERS Safety Report 8913548 (Version 1)
Quarter: 2012Q4

REPORT INFORMATION
  Report Type: Spontaneous
  Country: CH (occurrence: None)
  Receive Date: 20121113
  Receipt Date: 20121113
  Transmission Date: 20130627
  Serious: Yes (Hospitalization)
  Sender: FDA-Public Use
  Company Number: 2012/166

PATIENT
  Age: 39 Year
  Sex: Female

DRUGS (2)
  1. VENLAFAXINE [Suspect]
     Indication: DEPRESSION
     Dates: start: 2002, end: 2011
  2. MIZOLASTINE 10 MG [Concomitant]

REACTIONS (2)
  - Hepatitis acute [None]
  - Hepatitis cholestatic [None]
